FAERS Safety Report 8354970 (Version 5)
Quarter: 2013Q1

REPORT INFORMATION
  Report Type: Spontaneous
  Country: US (occurrence: US)
  Receive Date: 20120125
  Receipt Date: 20130128
  Transmission Date: 20140127
  Serious: Yes (Hospitalization, Other)
  Sender: FDA-Public Use
  Company Number: US-PFIZER INC-2012018473

PATIENT
  Age: 83 Year
  Sex: Male
  Weight: 60.32 kg

DRUGS (4)
  1. LIPITOR [Suspect]
     Indication: CARDIAC OPERATION
     Dosage: 20 MG, 1X/DAY
     Route: 048
  2. LIPITOR [Suspect]
     Dosage: 60 MG, 1X/DAY
     Route: 048
  3. LIPITOR [Suspect]
     Dosage: UNK
  4. ZOLOFT [Suspect]
     Dosage: UNK

REACTIONS (4)
  - Cardiovascular disorder [Unknown]
  - Groin pain [Unknown]
  - Surgery [Unknown]
  - Amnesia [Unknown]
